FAERS Safety Report 8580766-X (Version None)
Quarter: 2012Q3

REPORT INFORMATION
  Report Type: 
  Country: None (occurrence: None)
  Receive Date: 20120809
  Receipt Date: 20120801
  Transmission Date: 20120928
  Serious: No
  Sender: FDA-Public Use
  Company Number: US-BIOGENIDEC-2012BI023230

PATIENT
  Age: 43 Year
  Sex: Female

DRUGS (6)
  1. NAPROXEN (ALEVE) [Concomitant]
     Indication: PREMEDICATION
  2. CYMBALTA [Concomitant]
     Indication: DEPRESSION
     Dates: start: 20120401
  3. BACLOFEN [Concomitant]
     Indication: SENSATION OF HEAVINESS
  4. BACLOFEN [Concomitant]
     Indication: GAIT DISTURBANCE
  5. AVONEX [Suspect]
     Indication: MULTIPLE SCLEROSIS
     Route: 030
     Dates: start: 20080326, end: 20120529
  6. TYLENOL PM [Concomitant]
     Indication: PREMEDICATION

REACTIONS (5)
  - JOINT STIFFNESS [None]
  - TOOTH INFECTION [None]
  - TOOTHACHE [None]
  - INFLUENZA LIKE ILLNESS [None]
  - ARTHRALGIA [None]
